FAERS Safety Report 16070462 (Version 2)
Quarter: 2019Q1

REPORT INFORMATION
  Report Type: Report from Study
  Country: GB (occurrence: GB)
  Receive Date: 20190314
  Receipt Date: 20190319
  Transmission Date: 20190418
  Serious: Yes (Hospitalization, Other)
  Sender: FDA-Public Use
  Company Number: GB-GLAXOSMITHKLINE-GB2019GSK045605

PATIENT
  Age: 28 Year
  Sex: Female

DRUGS (30)
  1. LAMOTRIGINE TABLETS [Concomitant]
     Active Substance: LAMOTRIGINE
     Dosage: UNK
     Dates: start: 2018
  2. BUPRENORPHINE PATCH [Concomitant]
     Active Substance: BUPRENORPHINE
     Dosage: UNK
  3. OXYCODONE [Concomitant]
     Active Substance: OXYCODONE
     Dosage: 5 MG, UNK
     Dates: start: 2017
  4. FOLIC ACID TABLETS [Concomitant]
     Active Substance: FOLIC ACID
     Dosage: UNK
  5. BELIMUMAB [Suspect]
     Active Substance: BELIMUMAB
     Indication: SYSTEMIC LUPUS ERYTHEMATOSUS
     Dosage: 1150 MG, CYC
     Route: 042
     Dates: start: 20171123, end: 20171123
  6. BELIMUMAB [Suspect]
     Active Substance: BELIMUMAB
     Dosage: UNK, CYC
     Route: 042
     Dates: start: 20180202, end: 20180202
  7. HYDROXYCHLOROQUINE TABLET [Concomitant]
     Active Substance: HYDROXYCHLOROQUINE
     Dosage: UNK
     Dates: start: 2017
  8. COTRIMOXAZOLE [Concomitant]
     Active Substance: SULFAMETHOXAZOLE\TRIMETHOPRIM
     Dosage: UNK
  9. CHLORPHENAMINE [Concomitant]
     Active Substance: CHLORPHENIRAMINE MALEATE
     Dosage: UNK
  10. AMITRIPTYLINE TABLETS [Concomitant]
     Dosage: UNK
  11. QUININE SULPHATE TABLETS [Concomitant]
     Dosage: UNK
  12. ATORVASTATIN TABLETS [Concomitant]
     Active Substance: ATORVASTATIN
     Dosage: UNK
     Dates: start: 2017
  13. OMEPRAZOLE CAPSULE [Concomitant]
     Active Substance: OMEPRAZOLE
     Dosage: UNK
  14. BELIMUMAB [Suspect]
     Active Substance: BELIMUMAB
     Dosage: UNK, CYC
     Route: 042
     Dates: start: 20180209, end: 20180209
  15. EPREX [Concomitant]
     Active Substance: ERYTHROPOIETIN
     Dosage: UNK
  16. ADCAL D3 CHEWABLE [Concomitant]
     Dosage: UNK
  17. PARACETAMOL [Concomitant]
     Active Substance: ACETAMINOPHEN
     Dosage: UNK
  18. CITALOPRAM [Concomitant]
     Active Substance: CITALOPRAM HYDROBROMIDE
     Dosage: UNK
  19. FLUCLOXACILLIN CAPSULES [Concomitant]
     Dosage: UNK
     Dates: start: 201806
  20. CALCIUM ACETATE. [Concomitant]
     Active Substance: CALCIUM ACETATE
     Dosage: UNK
  21. CORSODYL MOUTHWASH [Concomitant]
     Dosage: UNK
  22. DOMPERIDONE TABLETS [Concomitant]
     Dosage: UNK
  23. DOXAZOSIN [Concomitant]
     Active Substance: DOXAZOSIN\DOXAZOSIN MESYLATE
     Dosage: UNK
  24. PREDNISOLONE TABLET [Concomitant]
     Active Substance: PREDNISOLONE
     Dosage: 45 MG, UNK
     Dates: start: 20141201
  25. PHOSEX [Concomitant]
     Dosage: 1 G, UNK
  26. BISOPROLOL TABLETS [Concomitant]
     Active Substance: BISOPROLOL
     Dosage: UNK
     Dates: start: 2017
  27. PREGABALIN CAPSULE [Concomitant]
     Dosage: UNK
  28. ALFACALCIDOL CAPSULE [Concomitant]
     Dosage: UNK
  29. FLUCLOXACILLIN [Concomitant]
     Active Substance: FLUCLOXACILLIN
     Route: 042
  30. AMLODIPINE [Concomitant]
     Active Substance: AMLODIPINE BESYLATE
     Dosage: UNK

REACTIONS (3)
  - Fluid overload [Recovered/Resolved with Sequelae]
  - Hypokalaemia [Recovered/Resolved with Sequelae]
  - Cellulitis [Recovered/Resolved with Sequelae]

NARRATIVE: CASE EVENT DATE: 20180704
